FAERS Safety Report 22164122 (Version 3)
Quarter: 2024Q1

REPORT INFORMATION
  Report Type: Report from Study
  Country: JP (occurrence: JP)
  Receive Date: 20230402
  Receipt Date: 20240329
  Transmission Date: 20240410
  Serious: Yes (Death, Other)
  Sender: FDA-Public Use
  Company Number: JP-002147023-NVSJ2021JP010571

PATIENT
  Age: 7 Year
  Sex: Male
  Weight: 20.7 kg

DRUGS (2)
  1. KYMRIAH [Suspect]
     Active Substance: TISAGENLECLEUCEL
     Indication: Acute lymphocytic leukaemia recurrent
     Dosage: TOTAL CELL DOSE: 0.7 X 10^8
     Route: 041
     Dates: start: 20210621, end: 20210621
  2. FLUDARABINE PHOSPHATE [Concomitant]
     Active Substance: FLUDARABINE PHOSPHATE
     Indication: Lymphodepletion
     Dosage: 120 MG
     Route: 065
     Dates: start: 20210603

REACTIONS (10)
  - Acute graft versus host disease [Fatal]
  - Hypogammaglobulinaemia [Recovered/Resolved]
  - Platelet count decreased [Unknown]
  - Enterococcal infection [Unknown]
  - Acute lymphocytic leukaemia recurrent [Unknown]
  - Malignant neoplasm progression [Unknown]
  - Hypogammaglobulinaemia [Not Recovered/Not Resolved]
  - Haemoglobin decreased [Unknown]
  - White blood cell count decreased [Unknown]
  - Blast cells present [Unknown]

NARRATIVE: CASE EVENT DATE: 20210621
